FAERS Safety Report 10088005 (Version 5)
Quarter: 2015Q1

REPORT INFORMATION
  Report Type: Spontaneous
  Country: JP (occurrence: JP)
  Receive Date: 20140420
  Receipt Date: 20150209
  Transmission Date: 20150720
  Serious: Yes (Other)
  Sender: FDA-Public Use
  Company Number: PHHY2014JP044280

PATIENT
  Age: 35 Year
  Sex: Female

DRUGS (4)
  1. IMATINIB [Suspect]
     Active Substance: IMATINIB
     Dosage: 300 MG, QD
     Route: 048
     Dates: start: 20110125
  2. IMATINIB [Suspect]
     Active Substance: IMATINIB
     Indication: GASTROINTESTINAL STROMAL TUMOUR
     Dosage: 400 MG, QD
     Route: 048
     Dates: start: 20101020
  3. IMATINIB [Suspect]
     Active Substance: IMATINIB
     Dosage: 400 MG, QD
     Route: 048
     Dates: end: 20110124
  4. IMATINIB [Suspect]
     Active Substance: IMATINIB
     Dosage: 300 MG, QD
     Route: 048

REACTIONS (7)
  - Intra-abdominal haemorrhage [Recovered/Resolved]
  - Bone marrow failure [Unknown]
  - Oedema [Unknown]
  - Flank pain [Recovered/Resolved]
  - Musculoskeletal pain [Unknown]
  - White blood cell count decreased [Unknown]
  - Haemorrhagic ascites [Unknown]

NARRATIVE: CASE EVENT DATE: 2010
